FAERS Safety Report 24459945 (Version 1)
Quarter: 2024Q4

REPORT INFORMATION
  Report Type: Report from Study
  Country: CN (occurrence: CN)
  Receive Date: 20241018
  Receipt Date: 20241018
  Transmission Date: 20250115
  Serious: No
  Sender: ROCHE
  Company Number: CN-ROCHE-3569138

PATIENT
  Age: 77 Year
  Sex: Female

DRUGS (5)
  1. MABTHERA [Suspect]
     Active Substance: RITUXIMAB
     Indication: Diffuse large B-cell lymphoma
     Dosage: THE SIXTH CYCLE, R-MINICDOP REGIMEN, ON DAY 1
     Route: 041
     Dates: start: 20230704
  2. CYCLOPHOSPHAMIDE [Concomitant]
     Active Substance: CYCLOPHOSPHAMIDE
     Indication: Diffuse large B-cell lymphoma
     Dosage: THE SIXTH CYCLE, R-MINICDOP REGIMEN, ON DAY 1
     Route: 042
     Dates: start: 20230704
  3. DOXORUBICIN HYDROCHLORIDE [Concomitant]
     Active Substance: DOXORUBICIN HYDROCHLORIDE
     Indication: Diffuse large B-cell lymphoma
     Dosage: THE SIXTH CYCLE, R-MINICDOP REGIMEN, ON DAY 1
     Route: 042
     Dates: start: 20230704
  4. VINORELBINE [Concomitant]
     Active Substance: VINORELBINE TARTRATE
     Indication: Diffuse large B-cell lymphoma
     Dosage: THE SIXTH CYCLE, R-MINICDOP REGIMEN, ON DAY 1
     Route: 042
     Dates: start: 20230704
  5. PREDNISONE [Concomitant]
     Active Substance: PREDNISONE
     Indication: Diffuse large B-cell lymphoma
     Dosage: THE SIXTH CYCLE, R-MINICDOP REGIMEN, ON DAY 1 TO DAY 5
     Route: 042
     Dates: start: 20230704

REACTIONS (2)
  - Iron deficiency [Unknown]
  - Iron deficiency anaemia [Unknown]

NARRATIVE: CASE EVENT DATE: 20230705
